FAERS Safety Report 4824164-0 (Version None)
Quarter: 2005Q4

REPORT INFORMATION
  Report Type: 
  Country: None (occurrence: None)
  Receive Date: 20051108
  Receipt Date: 20051026
  Transmission Date: 20060501
  Serious: Yes (Disabling, Other)
  Sender: FDA-Public Use
  Company Number: USA0510111873

PATIENT
  Age: 69 Year
  Sex: Female
  Weight: 89 kg

DRUGS (2)
  1. HUMALOG MIX 75/25 [Suspect]
     Dosage: 60 U/2 DAY
     Dates: start: 20040401
  2. HUMULIN 70/30 [Suspect]
     Dates: start: 19940101, end: 20040401

REACTIONS (5)
  - BREAST CANCER FEMALE [None]
  - DIABETIC NEUROPATHY [None]
  - OSTEOARTHRITIS [None]
  - PHARMACEUTICAL PRODUCT COMPLAINT [None]
  - WRONG TECHNIQUE IN DRUG USAGE PROCESS [None]
